FAERS Safety Report 11761355 (Version 1)
Quarter: 2015Q4

REPORT INFORMATION
  Report Type: Spontaneous
  Country: US (occurrence: US)
  Receive Date: 20151120
  Receipt Date: 20151120
  Transmission Date: 20160304
  Serious: No
  Sender: FDA-Public Use
  Company Number: US-ELI_LILLY_AND_COMPANY-US201212001840

PATIENT
  Sex: Female

DRUGS (2)
  1. FORTEO [Suspect]
     Active Substance: TERIPARATIDE
     Indication: SENILE OSTEOPOROSIS
     Dosage: UNK, QD
     Dates: start: 20121125
  2. FORTEO [Suspect]
     Active Substance: TERIPARATIDE
     Dosage: UNK, QD
     Dates: end: 201212

REACTIONS (7)
  - Fatigue [Unknown]
  - Influenza [Unknown]
  - Muscle spasms [Unknown]
  - Asthenia [Unknown]
  - Viral infection [Unknown]
  - Local swelling [Unknown]
  - Cough [Unknown]
